FAERS Safety Report 5605683-6 (Version None)
Quarter: 2008Q1

REPORT INFORMATION
  Report Type: 
  Country: None (occurrence: None)
  Receive Date: 20080125
  Receipt Date: 20080115
  Transmission Date: 20080703
  Serious: Yes (Death)
  Sender: FDA-Public Use
  Company Number: GXKR2008US00804

PATIENT
  Age: 54 Year
  Sex: Male

DRUGS (5)
  1. METOPROLOL SUCCINATE [Suspect]
     Indication: TACHYCARDIA
     Dosage: 2.5 MG, 2 DOSES, INTRAVENOUS
     Route: 042
  2. COCAINE(COCAINE) [Suspect]
     Dosage: 1 G, INTRANASAL
  3. ACETYLSALICYLIC ACID SRT [Concomitant]
  4. GLYCEROL TRINITRAT (GLYCERYL TRINITRATE) [Concomitant]
  5. DIAZEPAM [Concomitant]

REACTIONS (13)
  - CARDIAC FAILURE CONGESTIVE [None]
  - CHEST PAIN [None]
  - DRUG INTERACTION [None]
  - ELECTROMECHANICAL DISSOCIATION [None]
  - GENERAL PHYSICAL HEALTH DETERIORATION [None]
  - HYPERHIDROSIS [None]
  - HYPOTENSION [None]
  - NAUSEA [None]
  - PALLOR [None]
  - PULSE ABSENT [None]
  - SINUS TACHYCARDIA [None]
  - UNEVALUABLE EVENT [None]
  - UNRESPONSIVE TO STIMULI [None]
